FAERS Safety Report 24436876 (Version 1)
Quarter: 2024Q4

REPORT INFORMATION
  Report Type: Spontaneous
  Country: US (occurrence: US)
  Receive Date: 20241015
  Receipt Date: 20241015
  Transmission Date: 20250114
  Serious: Yes (Other)
  Sender: AUROBINDO
  Company Number: US-MLMSERVICE-20240924-PI206446-00030-1

PATIENT
  Age: 75 Year
  Sex: Female

DRUGS (2)
  1. IBUPROFEN [Suspect]
     Active Substance: IBUPROFEN
     Indication: Product used for unknown indication
     Dosage: 1200 MILLIGRAM, ONCE A DAY (800?1200 MG IBUPROFEN DAILY FOR THE PAST YEAR)
     Route: 065
  2. IBUPROFEN [Suspect]
     Active Substance: IBUPROFEN
     Dosage: 800 MILLIGRAM, ONCE A DAY (800?1200 MG IBUPROFEN DAILY FOR THE PAST YEAR)
     Route: 065

REACTIONS (1)
  - Duodenal ulcer [Recovered/Resolved]
